FAERS Safety Report 10014517 (Version 1)
Quarter: 2014Q1

REPORT INFORMATION
  Report Type: Report from Study
  Country: US (occurrence: US)
  Receive Date: 20140317
  Receipt Date: 20140317
  Transmission Date: 20141002
  Serious: Yes (Hospitalization)
  Sender: FDA-Public Use
  Company Number: US-ROCHE-1359552

PATIENT
  Sex: Female

DRUGS (1)
  1. ERIVEDGE [Suspect]
     Indication: PRODUCT USED FOR UNKNOWN INDICATION
     Route: 048

REACTIONS (4)
  - Investigation [Not Recovered/Not Resolved]
  - Lipase increased [Not Recovered/Not Resolved]
  - Transaminases increased [Not Recovered/Not Resolved]
  - Abdominal pain [Not Recovered/Not Resolved]
